FAERS Safety Report 7417504-X (Version None)
Quarter: 2011Q2

REPORT INFORMATION
  Report Type: 
  Country: None (occurrence: None)
  Receive Date: 20110415
  Receipt Date: 20110331
  Transmission Date: 20111010
  Serious: Yes (Other)
  Sender: FDA-Public Use
  Company Number: CO-AMGEN-QUU442089

PATIENT
  Age: 51 Year
  Sex: Female

DRUGS (8)
  1. HYDROMORPHONE HCL [Concomitant]
     Indication: PAIN
     Dosage: UNK UNK, UNK
  2. ACETAMINOPHEN [Concomitant]
     Indication: PAIN
     Dosage: 1 G, QID
  3. ETANERCEPT [Suspect]
     Indication: PAIN
     Dosage: 50 MG, QWK
     Route: 058
     Dates: start: 20091101
  4. METHOCARBAMOL [Concomitant]
     Indication: PAIN
     Dosage: 750 MG, TID
  5. METHOTREXATE [Suspect]
     Indication: RHEUMATOID ARTHRITIS
     Dosage: 15 MG, QWK
     Route: 048
     Dates: start: 20070101
  6. OMEPRAZOLE [Concomitant]
     Indication: GASTRIC ULCER
     Dosage: UNK UNK, UNK
  7. GABAPENTIN [Suspect]
     Indication: PAIN
     Dosage: 600 MG, TID
  8. GABAPENTIN [Suspect]
     Indication: RHEUMATOID ARTHRITIS

REACTIONS (4)
  - MUSCULOSKELETAL DISCOMFORT [None]
  - JOINT DESTRUCTION [None]
  - GAIT DISTURBANCE [None]
  - ARTHRALGIA [None]
